FAERS Safety Report 5780895-X (Version None)
Quarter: 2008Q2

REPORT INFORMATION
  Report Type: 
  Country: None (occurrence: None)
  Receive Date: 20080620
  Receipt Date: 20080606
  Transmission Date: 20081010
  Serious: Yes (Other)
  Sender: FDA-Public Use
  Company Number: PHHY2008JP05832

PATIENT

DRUGS (2)
  1. TEGRETOL [Suspect]
  2. LITHIUM CARBONATE [Concomitant]

REACTIONS (3)
  - ABORTION INDUCED [None]
  - ANXIETY [None]
  - DRUG EXPOSURE DURING PREGNANCY [None]
